FAERS Safety Report 5987034-0 (Version None)
Quarter: 2008Q4

REPORT INFORMATION
  Report Type: 
  Country: None (occurrence: None)
  Receive Date: 20081209
  Receipt Date: 20081203
  Transmission Date: 20090506
  Serious: Yes (Other)
  Sender: FDA-Public Use
  Company Number: B0549256A

PATIENT
  Age: 50 Year
  Sex: Male

DRUGS (5)
  1. AUGMENTIN '125' [Suspect]
     Indication: PERIODONTITIS
     Dosage: 1500MG PER DAY
     Route: 048
     Dates: start: 20080520, end: 20080530
  2. FUCUS VESICULOSUS [Suspect]
     Indication: OBESITY
     Route: 048
     Dates: start: 20080501, end: 20080505
  3. UNKNOWN DRUG [Suspect]
     Indication: OBESITY
     Route: 048
     Dates: start: 20080501, end: 20080505
  4. GARCINIA [Concomitant]
     Indication: OBESITY
     Route: 048
     Dates: start: 20080501, end: 20080505
  5. UNKNOWN DRUG [Concomitant]
     Dates: start: 20080501, end: 20080505

REACTIONS (5)
  - ALANINE AMINOTRANSFERASE INCREASED [None]
  - ASPARTATE AMINOTRANSFERASE INCREASED [None]
  - BLOOD ALKALINE PHOSPHATASE INCREASED [None]
  - GAMMA-GLUTAMYLTRANSFERASE INCREASED [None]
  - HEPATITIS ACUTE [None]
